FAERS Safety Report 4284129-7 (Version None)
Quarter: 2004Q1

REPORT INFORMATION
  Report Type: 
  Country: None (occurrence: None)
  Receive Date: 20040203
  Receipt Date: 20030911
  Transmission Date: 20041129
  Serious: Yes (Other)
  Sender: FDA-Public Use
  Company Number: US-GLAXOSMITHKLINE-A0425506A

PATIENT
  Age: 61 Year
  Sex: Female
  Weight: 84.5 kg

DRUGS (16)
  1. AUGMENTIN '125' [Suspect]
     Indication: ACUTE SINUSITIS
     Dosage: 2TAB TWICE PER DAY
     Route: 048
     Dates: start: 20030702, end: 20030717
  2. PREMARIN [Concomitant]
  3. FOSAMAX [Concomitant]
  4. MULTIVITAMIN [Concomitant]
  5. SYNTHROID [Concomitant]
  6. VITAMIN E [Concomitant]
  7. VITAMIN C [Concomitant]
  8. VITAMIN B-12 [Concomitant]
  9. VITAMIN B6 [Concomitant]
  10. NORITATE [Concomitant]
  11. RANITIDINE [Suspect]
     Dates: start: 20030729, end: 20030819
  12. ASTELIN [Suspect]
     Dates: start: 20030729
  13. ADVAIR DISKUS 100/50 [Concomitant]
     Indication: ASTHMA
     Dosage: 1PUFF TWICE PER DAY
     Route: 055
  14. PAROXETINE [Concomitant]
     Indication: POST-TRAUMATIC STRESS DISORDER
     Dosage: 10MG PER DAY
     Route: 048
     Dates: end: 20030819
  15. ZYRTEC [Concomitant]
     Dosage: 10MG AS REQUIRED
     Route: 048
  16. VIACTIV [Concomitant]

REACTIONS (9)
  - ABDOMINAL PAIN [None]
  - ABDOMINAL PAIN UPPER [None]
  - ANGIOMYOLIPOMA [None]
  - CHROMATURIA [None]
  - HEPATIC ENZYME INCREASED [None]
  - JAUNDICE [None]
  - JAUNDICE CHOLESTATIC [None]
  - PRURITUS [None]
  - RENAL CYST [None]
